FAERS Safety Report 7917127-X (Version None)
Quarter: 2011Q4

REPORT INFORMATION
  Report Type: 
  Country: None (occurrence: None)
  Receive Date: 20111114
  Receipt Date: 20111028
  Transmission Date: 20120403
  Serious: Yes (Other)
  Sender: FDA-Public Use
  Company Number: 1000024627

PATIENT
  Age: 36 Year
  Sex: Female
  Weight: 85 kg

DRUGS (4)
  1. FOLIC ACID [Concomitant]
  2. ESCITALOPRAM OXALATE [Suspect]
     Indication: DEPRESSION
     Dosage: 5 MG (5 MG, 1 IN 1 D), ORAL
     Route: 048
  3. L-THYROXIN (LEVOTHYROXINE SODIUM) (LEVOTHYROXINE SODIUM) [Concomitant]
  4. TRAZODONE HCL [Suspect]
     Indication: SLEEP DISORDER
     Dosage: 12.5 MG (12.5 MG, 1 IN 1 D), ORAL
     Route: 048

REACTIONS (3)
  - OLIGOHYDRAMNIOS [None]
  - ABORTION MISSED [None]
  - MATERNAL EXPOSURE DURING PREGNANCY [None]
